FAERS Safety Report 25202692 (Version 3)
Quarter: 2025Q4

REPORT INFORMATION
  Report Type: Spontaneous
  Country: JP (occurrence: JP)
  Receive Date: 20250416
  Receipt Date: 20251105
  Transmission Date: 20260117
  Serious: Yes (Other)
  Sender: MERCK SHARP & DOHME LLC
  Company Number: JP-009507513-2276192

PATIENT
  Age: 72 Year
  Sex: Male

DRUGS (1)
  1. KEYTRUDA [Suspect]
     Active Substance: PEMBROLIZUMAB
     Dosage: 200MG ONCE EVERY 3 WEEKS
     Route: 041

REACTIONS (5)
  - Stevens-Johnson syndrome [Unknown]
  - Rash [Unknown]
  - Cardiac ventricular thrombosis [Unknown]
  - Erythema multiforme [Unknown]
  - Surgery [Unknown]
